FAERS Safety Report 16045717 (Version 2)
Quarter: 2019Q1

REPORT INFORMATION
  Report Type: Report from Study
  Country: TR (occurrence: TR)
  Receive Date: 20190307
  Receipt Date: 20190313
  Transmission Date: 20190418
  Serious: Yes (Hospitalization)
  Sender: FDA-Public Use
  Company Number: TR-ROCHE-2105811

PATIENT
  Age: 65 Year
  Sex: Female
  Weight: 62.8 kg

DRUGS (74)
  1. BLINDED ATEZOLIZUMAB [Suspect]
     Active Substance: ATEZOLIZUMAB
     Indication: OVARIAN CANCER
     Dosage: DATE OF MOST RECENT DOSE OF BLINDED ATEZOLIZUMAB PRIOR TO AE ONSET: 25/MAY/2018?DATE OF MOST RECENT
     Route: 042
     Dates: start: 20180406
  2. PACLITAXEL. [Suspect]
     Active Substance: PACLITAXEL
     Indication: OVARIAN CANCER
     Dosage: ON DAY 1 OF EACH 21-DAY CYCLE, RECENT DOSE ON  25/MAY/2018 ON 230 MG (ADVERSE EVENT: VOMITING).?DOSE
     Route: 042
     Dates: start: 20180406
  3. FILGRASTIM [Concomitant]
     Active Substance: FILGRASTIM
     Dosage: PRN (AS NEEDED)
     Route: 058
     Dates: start: 20180810, end: 20180810
  4. TRAMADOL HCL [Concomitant]
     Active Substance: TRAMADOL HYDROCHLORIDE
     Indication: PAIN
     Route: 065
     Dates: start: 20180612, end: 20180628
  5. LEVOTHYROXINE SODIUM. [Concomitant]
     Active Substance: LEVOTHYROXINE SODIUM
     Indication: HYPOTHYROIDISM
     Dosage: PRN (AS NEEDED)
     Route: 048
     Dates: start: 20180612, end: 20180628
  6. FENTANYL. [Concomitant]
     Active Substance: FENTANYL
     Indication: PAIN
     Route: 062
     Dates: start: 20180731
  7. SUCRALFATE. [Concomitant]
     Active Substance: SUCRALFATE
     Route: 065
     Dates: start: 20180528, end: 20180604
  8. CEFTRIAXONE. [Concomitant]
     Active Substance: CEFTRIAXONE
     Indication: SEPSIS
     Route: 065
     Dates: start: 20180813, end: 20180830
  9. MEFENAMIC ACID. [Concomitant]
     Active Substance: MEFENAMIC ACID
     Indication: HEADACHE
     Route: 065
     Dates: start: 20181130
  10. FENIRAMINE [Concomitant]
     Indication: PREMEDICATION
     Route: 065
     Dates: start: 20180406, end: 20180406
  11. FENIRAMINE [Concomitant]
     Route: 065
     Dates: start: 20180710, end: 20180710
  12. FILGRASTIM [Concomitant]
     Active Substance: FILGRASTIM
     Indication: NEUTROPHIL COUNT DECREASED
     Route: 065
     Dates: start: 20180416, end: 20180417
  13. FUSIDIC ACID [Concomitant]
     Active Substance: FUSIDIC ACID
     Indication: RASH PUSTULAR
     Route: 065
     Dates: start: 20180430
  14. NUTRITIONAL SUPPLEMENT [Concomitant]
     Active Substance: DIETARY SUPPLEMENT
     Indication: DECREASED APPETITE
     Route: 065
     Dates: start: 20180528, end: 20180604
  15. MAGNESIUM SULPHATE [Concomitant]
     Active Substance: MAGNESIUM SULFATE
     Route: 065
     Dates: start: 20180504, end: 20180518
  16. PRILOCAIN [Concomitant]
     Active Substance: PRILOCAINE
     Indication: ANAESTHESIA
     Route: 065
     Dates: start: 20180504, end: 20180518
  17. LINEZOLID. [Concomitant]
     Active Substance: LINEZOLID
     Indication: SKIN INFECTION
     Route: 065
     Dates: start: 20180813, end: 20180830
  18. PALONOSETRON. [Concomitant]
     Active Substance: PALONOSETRON HYDROCHLORIDE
     Route: 065
     Dates: start: 20180810, end: 20180810
  19. RANITIDIN [Concomitant]
     Active Substance: RANITIDINE HYDROCHLORIDE
     Route: 065
     Dates: start: 20180810, end: 20180810
  20. RANITIDIN [Concomitant]
     Active Substance: RANITIDINE HYDROCHLORIDE
     Route: 065
     Dates: start: 20180911, end: 20180911
  21. FILGRASTIM [Concomitant]
     Active Substance: FILGRASTIM
     Indication: ANAEMIA
     Route: 065
     Dates: start: 20180608, end: 20180608
  22. PARACETAMOL [Concomitant]
     Active Substance: ACETAMINOPHEN
     Route: 065
     Dates: start: 20180813, end: 20180830
  23. WARFARIN SODIUM. [Concomitant]
     Active Substance: WARFARIN SODIUM
     Indication: EMBOLISM
     Route: 065
     Dates: start: 20180813, end: 20180830
  24. LEVOTHYROXINE SODIUM. [Concomitant]
     Active Substance: LEVOTHYROXINE SODIUM
     Route: 065
     Dates: start: 20180528, end: 20180604
  25. PANTOPRAZOLE [Concomitant]
     Active Substance: PANTOPRAZOLE
     Route: 065
     Dates: start: 20180504, end: 20180518
  26. ERYTHROCYTES [Concomitant]
     Active Substance: HUMAN RED BLOOD CELL
     Dosage: SUSPENSION
     Route: 065
  27. DEXAMETHASONE. [Concomitant]
     Active Substance: DEXAMETHASONE
     Route: 042
     Dates: start: 20180427, end: 20180427
  28. DEXAMETHASONE. [Concomitant]
     Active Substance: DEXAMETHASONE
     Route: 042
     Dates: start: 20180710, end: 20180710
  29. PARACETAMOL [Concomitant]
     Active Substance: ACETAMINOPHEN
     Indication: ARTHRALGIA
     Route: 065
     Dates: start: 20180427
  30. TRAMADOL HCL [Concomitant]
     Active Substance: TRAMADOL HYDROCHLORIDE
     Route: 065
     Dates: start: 20180504, end: 20180518
  31. METRONIDAZOLE. [Concomitant]
     Active Substance: METRONIDAZOLE
     Indication: INFECTION
     Route: 065
     Dates: start: 20180504, end: 20180518
  32. PIPERACILLIN. [Concomitant]
     Active Substance: PIPERACILLIN SODIUM
     Indication: INFECTION
     Route: 065
     Dates: start: 20180504, end: 20180518
  33. SODIUM AMIDOTRIZOATE [Concomitant]
     Route: 065
     Dates: start: 20180509, end: 20180509
  34. CARBOPLATIN. [Suspect]
     Active Substance: CARBOPLATIN
     Indication: OVARIAN CANCER
     Dosage: AT A DOSE TO ACHIEVE A TARGET AREA UNDER THE CURVE (AUC) OF 6 MILLIGRAMS PER MILLILITER*MINUTE (MG/M
     Route: 042
     Dates: start: 20180406
  35. LIDOCAINE/TRIBENOSIDE [Concomitant]
     Indication: HAEMORRHOIDS
     Route: 065
     Dates: start: 2010
  36. PALONOSETRON. [Concomitant]
     Active Substance: PALONOSETRON HYDROCHLORIDE
     Indication: PAIN
     Route: 065
     Dates: start: 20180427, end: 20180427
  37. PALONOSETRON. [Concomitant]
     Active Substance: PALONOSETRON HYDROCHLORIDE
     Route: 065
     Dates: start: 20180911, end: 20180911
  38. RANITIDIN [Concomitant]
     Active Substance: RANITIDINE HYDROCHLORIDE
     Indication: PREMEDICATION
     Route: 065
     Dates: start: 20180406, end: 20180406
  39. RANITIDIN [Concomitant]
     Active Substance: RANITIDINE HYDROCHLORIDE
     Route: 065
     Dates: start: 20180427, end: 20180427
  40. BLOOD TRANSFUSION [Concomitant]
     Active Substance: HUMAN RED BLOOD CELL
     Indication: ANAEMIA
     Route: 065
     Dates: start: 20180417, end: 20180417
  41. CETIRIZINE DIHYDROCHLORIDE [Concomitant]
     Active Substance: CETIRIZINE HYDROCHLORIDE
     Indication: RASH PUSTULAR
     Route: 065
     Dates: start: 20180430
  42. NUTRITIONAL SUPPLEMENT [Concomitant]
     Active Substance: DIETARY SUPPLEMENT
     Indication: WEIGHT DECREASED
     Route: 065
     Dates: start: 20180518, end: 20180601
  43. WARFARIN SODIUM. [Concomitant]
     Active Substance: WARFARIN SODIUM
     Route: 065
     Dates: start: 20190122
  44. LEVOTHYROXINE SODIUM. [Concomitant]
     Active Substance: LEVOTHYROXINE SODIUM
     Route: 065
     Dates: start: 20180504, end: 20180518
  45. LANSOPRAZOLE. [Concomitant]
     Active Substance: LANSOPRAZOLE
     Route: 065
     Dates: start: 20180731
  46. FLUCONAZOLE. [Concomitant]
     Active Substance: FLUCONAZOLE
     Indication: INFECTION
     Route: 065
     Dates: start: 20180504, end: 20180518
  47. PIPERACILLIN. [Concomitant]
     Active Substance: PIPERACILLIN SODIUM
     Indication: PYREXIA
     Route: 065
     Dates: start: 20180813, end: 20180830
  48. TRANEXAMIC ACID. [Concomitant]
     Active Substance: TRANEXAMIC ACID
     Dosage: RISK OF BLEEDING
     Route: 065
     Dates: start: 20180813, end: 20180830
  49. VITAMIN B12 [Concomitant]
     Active Substance: CYANOCOBALAMIN
     Indication: PROPHYLAXIS
     Route: 065
     Dates: start: 20180911
  50. BEVACIZUMAB. [Suspect]
     Active Substance: BEVACIZUMAB
     Indication: OVARIAN CANCER
     Dosage: DATE OF MOST RECENT DOSE PRIOR TO SAE ONSET 25/MAY/2018, 900 MG.
     Route: 042
     Dates: start: 20180427
  51. AMITRIPTYLINE HCL [Concomitant]
     Active Substance: AMITRIPTYLINE
     Indication: HEADACHE
     Route: 065
     Dates: start: 20181130
  52. PALONOSETRON. [Concomitant]
     Active Substance: PALONOSETRON HYDROCHLORIDE
     Indication: PREMEDICATION
     Route: 065
     Dates: start: 20180406, end: 20180406
  53. FENIRAMINE [Concomitant]
     Route: 065
     Dates: start: 20180427, end: 20180427
  54. DEXAMETHASONE. [Concomitant]
     Active Substance: DEXAMETHASONE
     Indication: PREMEDICATION
     Route: 042
     Dates: start: 20180406, end: 20180406
  55. DEXAMETHASONE. [Concomitant]
     Active Substance: DEXAMETHASONE
     Route: 042
     Dates: start: 20180810, end: 20180810
  56. PANTOPRAZOLE [Concomitant]
     Active Substance: PANTOPRAZOLE
     Route: 065
     Dates: start: 20180528, end: 20180604
  57. MEROPENEM. [Concomitant]
     Active Substance: MEROPENEM
     Indication: INFECTION
     Route: 065
     Dates: start: 20180504, end: 20180518
  58. FENIRAMINE [Concomitant]
     Route: 065
     Dates: start: 20180911, end: 20180911
  59. DEXAMETHASONE. [Concomitant]
     Active Substance: DEXAMETHASONE
     Route: 042
     Dates: start: 20180911, end: 20180911
  60. FILGRASTIM [Concomitant]
     Active Substance: FILGRASTIM
     Dosage: PRN (AS NEEDED)
     Route: 058
     Dates: start: 20180504, end: 20180518
  61. DESLORATADINE. [Concomitant]
     Active Substance: DESLORATADINE
     Indication: RHINITIS ALLERGIC
     Route: 065
     Dates: start: 2012
  62. TROSPIUM [Concomitant]
     Active Substance: TROSPIUM
     Indication: URINARY INCONTINENCE
     Route: 065
     Dates: start: 201712
  63. LOPERAMIDE [Concomitant]
     Active Substance: LOPERAMIDE
     Indication: DIARRHOEA
     Route: 065
     Dates: start: 20180518
  64. WARFARIN SODIUM. [Concomitant]
     Active Substance: WARFARIN SODIUM
     Indication: THROMBOCYTOPENIA
     Route: 065
     Dates: start: 20180612, end: 20180628
  65. PANTOPRAZOLE [Concomitant]
     Active Substance: PANTOPRAZOLE
     Route: 065
     Dates: start: 20180813, end: 20180830
  66. SUCRALFATE. [Concomitant]
     Active Substance: SUCRALFATE
     Route: 065
     Dates: start: 20180504, end: 20180518
  67. TEICOPLANIN [Concomitant]
     Active Substance: TEICOPLANIN
     Indication: INFECTION
     Route: 065
     Dates: start: 20180504, end: 20180518
  68. TAZOBACTAM [Concomitant]
     Active Substance: TAZOBACTAM
     Indication: INFECTION
     Route: 065
     Dates: start: 20180504, end: 20180518
  69. MEGESTROL ACETATE. [Concomitant]
     Active Substance: MEGESTROL ACETATE
     Indication: DECREASED APPETITE
     Route: 065
     Dates: start: 20180528, end: 20180604
  70. PALONOSETRON. [Concomitant]
     Active Substance: PALONOSETRON HYDROCHLORIDE
     Route: 065
     Dates: start: 20180710, end: 20180710
  71. RANITIDIN [Concomitant]
     Active Substance: RANITIDINE HYDROCHLORIDE
     Route: 065
     Dates: start: 20180710, end: 20180710
  72. FENIRAMINE [Concomitant]
     Route: 065
     Dates: start: 20180810, end: 20180810
  73. LEVOTHYROXINE. [Concomitant]
     Active Substance: LEVOTHYROXINE
     Indication: HYPOTHYROIDISM
     Route: 065
     Dates: start: 1995
  74. PANTOPRAZOLE [Concomitant]
     Active Substance: PANTOPRAZOLE
     Route: 065
     Dates: start: 20180612, end: 20180628

REACTIONS (11)
  - Diarrhoea [Recovered/Resolved]
  - Embolism [Recovering/Resolving]
  - Febrile neutropenia [Recovered/Resolved]
  - Vomiting [Recovered/Resolved]
  - International normalised ratio increased [Recovering/Resolving]
  - Vomiting [Recovered/Resolved]
  - Platelet count decreased [Recovered/Resolved]
  - Platelet count decreased [Recovered/Resolved]
  - Mucosal inflammation [Recovered/Resolved]
  - Diarrhoea [Recovered/Resolved]
  - Pyrexia [Recovered/Resolved]

NARRATIVE: CASE EVENT DATE: 20180407
